FAERS Safety Report 6827787-2 (Version None)
Quarter: 2010Q3

REPORT INFORMATION
  Report Type: 
  Country: None (occurrence: None)
  Receive Date: 20100709
  Receipt Date: 20070129
  Transmission Date: 20110219
  Serious: No
  Sender: FDA-Public Use
  Company Number: US-PFIZER INC-2007008896

PATIENT
  Sex: Male
  Weight: 88.45 kg

DRUGS (8)
  1. CHANTIX [Suspect]
     Indication: SMOKING CESSATION THERAPY
     Dates: start: 20070101
  2. LISINOPRIL [Concomitant]
  3. ACETYLSALICYLIC ACID [Concomitant]
  4. METOPROLOL [Concomitant]
  5. CENTRUM SILVER [Concomitant]
  6. CARTIA XT [Concomitant]
  7. SIMVASTATIN [Concomitant]
  8. MUCINEX [Concomitant]

REACTIONS (2)
  - ABDOMINAL PAIN UPPER [None]
  - NAUSEA [None]
